FAERS Safety Report 21378668 (Version 4)
Quarter: 2023Q1

REPORT INFORMATION
  Report Type: Report from Study
  Country: US (occurrence: US)
  Receive Date: 20220927
  Receipt Date: 20230110
  Transmission Date: 20230418
  Serious: No
  Sender: FDA-Public Use
  Company Number: US-NOVARTISTESTPH-NVSC2022US216010

PATIENT
  Sex: Female

DRUGS (1)
  1. KISQALI [Suspect]
     Active Substance: RIBOCICLIB
     Indication: Product used for unknown indication
     Dosage: UNK
     Route: 048
     Dates: start: 20220825

REACTIONS (11)
  - Dehydration [Unknown]
  - Insomnia [Unknown]
  - Liver disorder [Unknown]
  - Nausea [Unknown]
  - Liver function test abnormal [Unknown]
  - Abdominal discomfort [Unknown]
  - Decreased appetite [Unknown]
  - Diarrhoea [Unknown]
  - Blood potassium decreased [Unknown]
  - Stomatitis [Unknown]
  - Blood calcium decreased [Unknown]
